FAERS Safety Report 7245486-2 (Version None)
Quarter: 2011Q1

REPORT INFORMATION
  Report Type: 
  Country: None (occurrence: None)
  Receive Date: 20110126
  Receipt Date: 20110119
  Transmission Date: 20110831
  Serious: Yes (Hospitalization)
  Sender: FDA-Public Use
  Company Number: CA-SANOFI-AVENTIS-2011SA003872

PATIENT
  Age: 55 Year
  Sex: Female
  Weight: 62.14 kg

DRUGS (1)
  1. TAXOTERE [Suspect]

REACTIONS (5)
  - IMMUNE SYSTEM DISORDER [None]
  - NAUSEA [None]
  - DECREASED APPETITE [None]
  - HALLUCINATION [None]
  - DIARRHOEA [None]
